FAERS Safety Report 6188851-7 (Version None)
Quarter: 2009Q2

REPORT INFORMATION
  Report Type: 
  Country: None (occurrence: None)
  Receive Date: 20090513
  Receipt Date: 20081218
  Transmission Date: 20091009
  Serious: Yes (Other)
  Sender: FDA-Public Use
  Company Number: US-JNJCH-2008057365

PATIENT
  Age: 64 Year
  Sex: Female

DRUGS (1)
  1. LUDENS THROAT DROPS WILD CHERRY [Suspect]
     Indication: DRY THROAT
     Dosage: TEXT:ONE DROP ONCE
     Route: 048
     Dates: start: 20081210, end: 20081210

REACTIONS (2)
  - PRODUCT QUALITY ISSUE [None]
  - TOOTH INJURY [None]
